FAERS Safety Report 25290786 (Version 1)
Quarter: 2025Q2

REPORT INFORMATION
  Report Type: Spontaneous
  Country: US (occurrence: US)
  Receive Date: 20250510
  Receipt Date: 20250510
  Transmission Date: 20250717
  Serious: No
  Sender: SANOFI AVENTIS
  Company Number: US-SA-2025SA119205

PATIENT
  Sex: Female

DRUGS (27)
  1. KEVZARA [Suspect]
     Active Substance: SARILUMAB
     Indication: Rheumatoid nodule
     Dosage: 200 MG, QOW
     Route: 058
  2. DULOXETINE [Concomitant]
     Active Substance: DULOXETINE
  3. FENOFIBRATE [Concomitant]
     Active Substance: FENOFIBRATE
  4. GABAPENTIN [Concomitant]
     Active Substance: GABAPENTIN
  5. LATANOPROST [Concomitant]
     Active Substance: LATANOPROST
  6. MEMANTINE [Concomitant]
     Active Substance: MEMANTINE
  7. MONTELUKAST [Concomitant]
     Active Substance: MONTELUKAST
  8. OXYBUTYNIN [Concomitant]
     Active Substance: OXYBUTYNIN
  9. MINERALS\VITAMINS [Concomitant]
     Active Substance: MINERALS\VITAMINS
  10. RIVASTIGMINE [Concomitant]
     Active Substance: RIVASTIGMINE
  11. VITAMIN D3 [Concomitant]
     Active Substance: CHOLECALCIFEROL
  12. ASPIRIN [Concomitant]
     Active Substance: ASPIRIN
  13. AVASTIN [Concomitant]
     Active Substance: BEVACIZUMAB
  14. BIOTIN [Concomitant]
     Active Substance: BIOTIN
  15. CALCIUM [Concomitant]
     Active Substance: CALCIUM
  16. FISH OIL\OMEGA-3 FATTY ACIDS [Concomitant]
     Active Substance: FISH OIL\OMEGA-3 FATTY ACIDS
  17. VITAMINS [Concomitant]
     Active Substance: VITAMINS
  18. NITROGLYCERIN [Concomitant]
     Active Substance: NITROGLYCERIN
  19. OXAZEPAM [Concomitant]
     Active Substance: OXAZEPAM
  20. AMLODIPINE BESYLATE [Concomitant]
     Active Substance: AMLODIPINE BESYLATE
  21. Apap/codeine phosphate [Concomitant]
  22. ATENOLOL [Concomitant]
     Active Substance: ATENOLOL
  23. LEVOTHYROXINE [Concomitant]
     Active Substance: LEVOTHYROXINE
  24. METHYLPREDNISOLONE [Concomitant]
     Active Substance: METHYLPREDNISOLONE
  25. MORPHINE SULFATE [Concomitant]
     Active Substance: MORPHINE SULFATE
  26. POTASSIUM CHLORIDE [Concomitant]
     Active Substance: POTASSIUM CHLORIDE
  27. PREDNISONE [Concomitant]
     Active Substance: PREDNISONE

REACTIONS (1)
  - Hypoacusis [Not Recovered/Not Resolved]
